FAERS Safety Report 11894603 (Version 1)
Quarter: 2016Q1

REPORT INFORMATION
  Report Type: Spontaneous
  Country: US (occurrence: None)
  Receive Date: 20160106
  Receipt Date: 20160106
  Transmission Date: 20160526
  Serious: Yes (Death)
  Sender: FDA-Public Use
  Company Number: None

PATIENT
  Age: 18 Year
  Sex: Female

DRUGS (2)
  1. PRENATAL VITAMINS [Concomitant]
     Active Substance: VITAMINS
  2. ZOFRAN [Suspect]
     Active Substance: ONDANSETRON HYDROCHLORIDE
     Indication: NAUSEA
     Dosage: 1 PILL
     Route: 048
     Dates: start: 201405, end: 201410

REACTIONS (3)
  - Maternal drugs affecting foetus [None]
  - Stillbirth [None]
  - Exposure during pregnancy [None]

NARRATIVE: CASE EVENT DATE: 20141016
